FAERS Safety Report 4602158-8 (Version None)
Quarter: 2005Q1

REPORT INFORMATION
  Report Type: 
  Country: None (occurrence: None)
  Receive Date: 20050214
  Receipt Date: 20040112
  Transmission Date: 20050727
  Serious: Yes (Other)
  Sender: FDA-Public Use
  Company Number: M2004.6742

PATIENT
  Age: 44 Year
  Sex: Female
  Weight: 63.05 kg

DRUGS (5)
  1. ALPRAZOLAM [Suspect]
     Indication: PANIC ATTACK
     Dosage: 3X DAILY, 1/2 TAB NIGHTLY
     Dates: end: 20030110
  2. AMBIEN [Concomitant]
  3. PROZAC [Concomitant]
  4. ESTROGEN [Concomitant]
  5. MYLANS ALPRAZOLAM [Concomitant]

REACTIONS (4)
  - ABNORMAL BEHAVIOUR [None]
  - AGITATION [None]
  - ANGER [None]
  - THINKING ABNORMAL [None]
